FAERS Safety Report 22188348 (Version 1)
Quarter: 2023Q2

REPORT INFORMATION
  Report Type: Other
  Country: US (occurrence: US)
  Receive Date: 20230408
  Receipt Date: 20230408
  Transmission Date: 20230721
  Serious: Yes (Death)
  Sender: FDA-Public Use
  Company Number: US-ALVOGEN-2023089521

PATIENT
  Age: 46 Year
  Sex: Male

DRUGS (3)
  1. TRAZODONE [Suspect]
     Active Substance: TRAZODONE HYDROCHLORIDE
     Indication: Drug abuse
  2. SILDENAFIL [Suspect]
     Active Substance: SILDENAFIL
     Indication: Drug abuse
  3. ALCOHOL [Suspect]
     Active Substance: ALCOHOL
     Indication: Drug abuse

REACTIONS (1)
  - Drug abuse [Fatal]
